FAERS Safety Report 13292287 (Version 1)
Quarter: 2017Q1

REPORT INFORMATION
  Report Type: Spontaneous
  Country: DE (occurrence: DE)
  Receive Date: 20170303
  Receipt Date: 20170303
  Transmission Date: 20170428
  Serious: Yes (Other)
  Sender: FDA-Public Use
  Company Number: DE-PFIZER INC-2017086957

PATIENT
  Age: 32 Year
  Sex: Female

DRUGS (2)
  1. SULFASALAZINE. [Suspect]
     Active Substance: SULFASALAZINE
     Indication: RHEUMATOID ARTHRITIS
     Dosage: 500 MG, 2X/DAY, (0. - 39. GESTATIONAL WEEK)
     Route: 048
     Dates: start: 20160108, end: 20161007
  2. FOLIC ACID. [Concomitant]
     Active Substance: FOLIC ACID
     Indication: PROPHYLAXIS OF NEURAL TUBE DEFECT
     Dosage: 5 MG, 1X/DAY, (0. - 39. GESTATIONAL WEEK)
     Route: 048
     Dates: start: 20160108, end: 20161007

REACTIONS (1)
  - Gestational diabetes [Unknown]
